FAERS Safety Report 16214735 (Version 1)
Quarter: 2019Q2

REPORT INFORMATION
  Report Type: Spontaneous
  Country: CN (occurrence: CN)
  Receive Date: 20190418
  Receipt Date: 20190418
  Transmission Date: 20190711
  Serious: Yes (Other)
  Sender: FDA-Public Use
  Company Number: CN-PFIZER INC-2019162518

PATIENT
  Age: 79 Year
  Sex: Male

DRUGS (2)
  1. TYGACIL [Suspect]
     Active Substance: TIGECYCLINE
     Indication: LUNG INFECTION
     Dosage: 100 MG, 2X/DAY
     Route: 042
     Dates: start: 20190401, end: 20190411
  2. HUMAN IMMUNOGLOBULIN (PH4) [Concomitant]
     Active Substance: HUMAN IMMUNOGLOBULIN G
     Indication: LUNG INFECTION
     Dosage: 5 G, 1X/DAY
     Route: 041
     Dates: start: 20190402, end: 20190412

REACTIONS (1)
  - Hypofibrinogenaemia [Recovering/Resolving]

NARRATIVE: CASE EVENT DATE: 20190411
